FAERS Safety Report 7059659-5 (Version None)
Quarter: 2010Q4

REPORT INFORMATION
  Report Type: 
  Country: None (occurrence: None)
  Receive Date: 20101025
  Receipt Date: 20100730
  Transmission Date: 20110411
  Serious: No
  Sender: FDA-Public Use
  Company Number: US-MYLANLABS-2010S1013982

PATIENT
  Age: 46 Year
  Sex: Female

DRUGS (1)
  1. DIVALPROEX SODIUM [Suspect]

REACTIONS (1)
  - VAGINITIS BACTERIAL [None]
